FAERS Safety Report 9648769 (Version 1)
Quarter: 2013Q4

REPORT INFORMATION
  Report Type: Spontaneous
  Country: MX (occurrence: MX)
  Receive Date: 20131028
  Receipt Date: 20131028
  Transmission Date: 20140711
  Serious: Yes (Death, Other)
  Sender: FDA-Public Use
  Company Number: PHHY2013MX120396

PATIENT
  Age: 67 Year
  Sex: Female

DRUGS (1)
  1. FEMARA [Suspect]
     Indication: BREAST CANCER
     Dosage: 1 DF, QD
     Route: 048
     Dates: start: 201110

REACTIONS (7)
  - Death [Fatal]
  - Renal disorder [Unknown]
  - Ascites [Unknown]
  - Ureteral disorder [Unknown]
  - Cardiomegaly [Unknown]
  - Breast cancer [Unknown]
  - Urinary tract infection [Unknown]
